FAERS Safety Report 6910617-8 (Version None)
Quarter: 2010Q3

REPORT INFORMATION
  Report Type: 
  Country: None (occurrence: None)
  Receive Date: 20100806
  Receipt Date: 20100726
  Transmission Date: 20110219
  Serious: Yes (Other)
  Sender: FDA-Public Use
  Company Number: JP-ROCHE-717427

PATIENT

DRUGS (2)
  1. BEVACIZUMAB [Suspect]
     Indication: POLYPOIDAL CHOROIDAL VASCULOPATHY
     Dosage: DOSE: 1.25 MG.
     Route: 031
  2. VERTEPORFIN [Suspect]
     Indication: POLYPOIDAL CHOROIDAL VASCULOPATHY
     Route: 065

REACTIONS (1)
  - RETINAL PIGMENT EPITHELIAL TEAR [None]
